FAERS Safety Report 4682345-3 (Version None)
Quarter: 2005Q2

REPORT INFORMATION
  Report Type: 
  Country: None (occurrence: None)
  Receive Date: 20050606
  Receipt Date: 20050421
  Transmission Date: 20051028
  Serious: Yes (Death, Hospitalization)
  Sender: FDA-Public Use
  Company Number: 200511338JP

PATIENT
  Age: 75 Year
  Sex: Male
  Weight: 73 kg

DRUGS (3)
  1. TAXOTERE [Suspect]
     Indication: ANGIOSARCOMA
     Route: 041
     Dates: start: 20040114, end: 20041027
  2. DECADRON [Concomitant]
     Indication: VOMITING
     Route: 041
     Dates: start: 20040114, end: 20041027
  3. KYTRIL [Concomitant]
     Indication: VOMITING
     Route: 041
     Dates: start: 20040114, end: 20041027

REACTIONS (5)
  - ANGIOSARCOMA [None]
  - MALIGNANT NEOPLASM PROGRESSION [None]
  - PLATELET COUNT DECREASED [None]
  - RESPIRATORY FAILURE [None]
  - TUMOUR HAEMORRHAGE [None]
